FAERS Safety Report 14028276 (Version 3)
Quarter: 2017Q4

REPORT INFORMATION
  Report Type: Spontaneous
  Country: FR (occurrence: FR)
  Receive Date: 20170930
  Receipt Date: 20171110
  Transmission Date: 20180321
  Serious: Yes (Hospitalization, Other)
  Sender: FDA-Public Use
  Company Number: FR-009507513-1709FRA013792

PATIENT
  Age: 56 Year
  Sex: Male

DRUGS (1)
  1. CANCIDAS [Suspect]
     Active Substance: CASPOFUNGIN ACETATE
     Indication: CANDIDA INFECTION
     Dosage: UNK
     Route: 042
     Dates: start: 20170820, end: 20170904

REACTIONS (2)
  - Renal tubular disorder [Recovered/Resolved]
  - Seizure [Recovered/Resolved]

NARRATIVE: CASE EVENT DATE: 2017
